FAERS Safety Report 20042682 (Version 1)
Quarter: 2021Q4

REPORT INFORMATION
  Report Type: Spontaneous
  Country: US (occurrence: US)
  Receive Date: 20211108
  Receipt Date: 20211108
  Transmission Date: 20220304
  Serious: Yes (Other)
  Sender: FDA-Public Use
  Company Number: US-GLAXOSMITHKLINE-US2021GSK229607

PATIENT
  Sex: Male

DRUGS (2)
  1. RANITIDINE [Suspect]
     Active Substance: RANITIDINE
     Indication: Intestinal operation
     Dosage: UNK, QD
     Route: 065
     Dates: start: 199607, end: 201808
  2. RANITIDINE [Suspect]
     Active Substance: RANITIDINE
     Indication: Intestinal operation
     Dosage: UNK, QD
     Route: 065
     Dates: start: 199607, end: 201808

REACTIONS (1)
  - Prostate cancer [Unknown]
